FAERS Safety Report 16723732 (Version 1)
Quarter: 2019Q3

REPORT INFORMATION
  Report Type: Spontaneous
  Country: DE (occurrence: DE)
  Receive Date: 20190821
  Receipt Date: 20190821
  Transmission Date: 20191005
  Serious: Yes (Hospitalization)
  Sender: FDA-Public Use
  Company Number: DE-TEVA-2019-DE-1094043

PATIENT
  Age: 51 Year
  Sex: Female

DRUGS (3)
  1. LEVOTHYROXIN-NATRIUM [Concomitant]
     Active Substance: LEVOTHYROXINE SODIUM
     Dosage: NK  1-0-0-0
  2. MAGNESIUM [Concomitant]
     Active Substance: MAGNESIUM
     Dosage: NK MG, NK
  3. CIPROFLOXACIN. [Suspect]
     Active Substance: CIPROFLOXACIN
     Dosage: NK MG, FROM 06.07.-13.07.2018
     Route: 065

REACTIONS (5)
  - Myalgia [Unknown]
  - Paraesthesia [Unknown]
  - Skin striae [Unknown]
  - Anxiety [Unknown]
  - Depressed mood [Unknown]
